FAERS Safety Report 7152337-3 (Version None)
Quarter: 2010Q4

REPORT INFORMATION
  Report Type: 
  Country: None (occurrence: None)
  Receive Date: 20101126
  Receipt Date: 20101104
  Transmission Date: 20110411
  Serious: Yes (Death, Hospitalization, Other)
  Sender: FDA-Public Use
  Company Number: BVT-000296

PATIENT
  Sex: Male
  Weight: 87 kg

DRUGS (8)
  1. KINERET [Suspect]
     Indication: RHEUMATOID ARTHRITIS
     Dates: start: 20021121, end: 20030915
  2. SULPHASALAZINE [Concomitant]
  3. METHOTREXATE [Concomitant]
  4. PLAQUENIL [Concomitant]
  5. FOLIC ACID [Concomitant]
  6. CO-CODAMOL [Concomitant]
  7. OMEPRAZOLE [Concomitant]
  8. LOPERAMIDE [Concomitant]

REACTIONS (1)
  - RENAL CANCER METASTATIC [None]
